FAERS Safety Report 8545983-3 (Version None)
Quarter: 2012Q3

REPORT INFORMATION
  Report Type: 
  Country: None (occurrence: None)
  Receive Date: 20120727
  Receipt Date: 20111202
  Transmission Date: 20120928
  Serious: No
  Sender: FDA-Public Use
  Company Number: US-ASTRAZENECA-2011SE72455

PATIENT
  Age: 60 Year
  Sex: Female
  Weight: 99.8 kg

DRUGS (6)
  1. DIALOPRAM [Concomitant]
  2. WARFARIN SODIUM [Concomitant]
  3. NARES NASAL SPRAY [Concomitant]
  4. HYDROXYCLOREQUINE [Concomitant]
  5. SEROQUEL [Suspect]
     Indication: MENTAL DISORDER
     Route: 048
  6. ALAVERT [Concomitant]

REACTIONS (3)
  - MIDDLE INSOMNIA [None]
  - DRUG INEFFECTIVE [None]
  - TACHYPHRENIA [None]
